FAERS Safety Report 13653112 (Version 1)
Quarter: 2017Q2

REPORT INFORMATION
  Report Type: Spontaneous
  Country: US (occurrence: US)
  Receive Date: 20170614
  Receipt Date: 20170614
  Transmission Date: 20170830
  Serious: No
  Sender: FDA-Public Use
  Company Number: US-ROCHE-758495

PATIENT
  Sex: Male

DRUGS (5)
  1. EPIRUBICIN [Concomitant]
     Active Substance: EPIRUBICIN
     Indication: GASTRIC CANCER
     Dosage: ON DAY 1
     Route: 042
  2. EMEND [Concomitant]
     Active Substance: APREPITANT
     Indication: NAUSEA
     Dosage: DOSE REPORTED AS 125, 80, 80 (1,2,3)
     Route: 048
  3. XELODA [Suspect]
     Active Substance: CAPECITABINE
     Indication: GASTRIC CANCER
     Dosage: DOSE REPORTED AS 1000, FORM: PILL
     Route: 048
     Dates: start: 20101221, end: 20110109
  4. XELODA [Suspect]
     Active Substance: CAPECITABINE
     Route: 048
  5. OXALIPLATIN. [Concomitant]
     Active Substance: OXALIPLATIN
     Indication: GASTRIC CANCER
     Dosage: ON DAY 1
     Route: 042

REACTIONS (3)
  - Medication error [Unknown]
  - Vomiting [Unknown]
  - Oesophageal stenosis [Recovering/Resolving]
